FAERS Safety Report 7810519-9 (Version None)
Quarter: 2011Q4

REPORT INFORMATION
  Report Type: 
  Country: None (occurrence: None)
  Receive Date: 20111013
  Receipt Date: 20111008
  Transmission Date: 20120403
  Serious: Yes (Hospitalization)
  Sender: FDA-Public Use
  Company Number: US-AMGEN-USACT2011049705

PATIENT
  Age: 68 Year
  Sex: Female

DRUGS (5)
  1. BLINDED DENOSUMAB [Suspect]
     Indication: BREAST CANCER
     Dates: start: 20110620
  2. DOXORUBICIN HCL [Concomitant]
     Dosage: UNK
     Dates: start: 20110601
  3. PLACEBO [Suspect]
     Indication: BREAST CANCER
     Dates: start: 20110620
  4. CYCLOPHOSPHAMIDE [Concomitant]
     Dosage: UNK
     Dates: start: 20110601
  5. DOCETAXEL [Concomitant]
     Dosage: UNK
     Dates: start: 20110601

REACTIONS (3)
  - HYPOTENSION [None]
  - ANAEMIA [None]
  - FATIGUE [None]
